FAERS Safety Report 4377314-7 (Version None)
Quarter: 2004Q2

REPORT INFORMATION
  Report Type: 
  Country: None (occurrence: None)
  Receive Date: 20040609
  Receipt Date: 20040405
  Transmission Date: 20050107
  Serious: No
  Sender: FDA-Public Use
  Company Number: 2004208622US

PATIENT

DRUGS (1)
  1. BEXTRA [Suspect]

REACTIONS (1)
  - MEMORY IMPAIRMENT [None]
